FAERS Safety Report 8697025 (Version 2)
Quarter: 2014Q2

REPORT INFORMATION
  Report Type: Report from Study
  Country: IT (occurrence: IT)
  Receive Date: 20120801
  Receipt Date: 20140613
  Transmission Date: 20141212
  Serious: Yes (Hospitalization)
  Sender: FDA-Public Use
  Company Number: IT-SHIRE-CQT2-2010-00005

PATIENT
  Age: 63 Year
  Sex: Female
  Weight: 96 kg

DRUGS (4)
  1. 422 (ANAGRELIDE) [Suspect]
     Indication: ESSENTIAL THROMBOCYTHAEMIA
     Dosage: 0.5 MG, 2X/DAY:BID
     Route: 048
     Dates: start: 20070604, end: 20091007
  2. TICLOPIDINA [Interacting]
     Indication: THROMBOCYTOSIS
     Dosage: 250 MG, 1X/DAY:QD
     Route: 048
     Dates: start: 19941017
  3. HYDROXYUREA [Suspect]
     Indication: ESSENTIAL THROMBOCYTHAEMIA
     Dosage: 17.5 MG, MONTHLY
     Route: 048
     Dates: start: 19941017, end: 200203
  4. INTERFERON [Suspect]
     Indication: ESSENTIAL THROMBOCYTHAEMIA
     Dosage: 3 MIU, THREE TIMES PER WEEK
     Route: 058
     Dates: start: 20020520, end: 20030313

REACTIONS (2)
  - Atrial fibrillation [Not Recovered/Not Resolved]
  - Drug interaction [Unknown]
